FAERS Safety Report 6670866-3 (Version None)
Quarter: 2010Q2

REPORT INFORMATION
  Report Type: 
  Country: None (occurrence: None)
  Receive Date: 20100407
  Receipt Date: 20100329
  Transmission Date: 20101027
  Serious: Yes (Hospitalization)
  Sender: FDA-Public Use
  Company Number: US-JNJFOC-20100400651

PATIENT
  Sex: Female
  Weight: 83.46 kg

DRUGS (9)
  1. DURAGESIC-100 [Suspect]
     Indication: BACK PAIN
     Route: 062
  2. DURAGESIC-100 [Suspect]
     Route: 062
  3. DURAGESIC-100 [Suspect]
     Route: 062
  4. DURAGESIC-100 [Suspect]
     Route: 062
  5. DURAGESIC-100 [Suspect]
     Route: 062
  6. LEXAPRO [Concomitant]
     Indication: DEPRESSION
     Route: 048
  7. CLIMARA PRO [Concomitant]
     Indication: HORMONE REPLACEMENT THERAPY
     Route: 062
  8. RISPERDAL [Concomitant]
     Indication: PSYCHOTIC DISORDER
     Route: 062
  9. NEXIUM [Concomitant]
     Indication: GASTRIC DISORDER
     Route: 048

REACTIONS (9)
  - DEPRESSION [None]
  - DRUG INEFFECTIVE [None]
  - EXPIRED DRUG ADMINISTERED [None]
  - HYPERTENSION [None]
  - INCORRECT DOSE ADMINISTERED [None]
  - INTERVERTEBRAL DISC DEGENERATION [None]
  - PAIN [None]
  - TINNITUS [None]
  - WITHDRAWAL SYNDROME [None]
